FAERS Safety Report 10449616 (Version 1)
Quarter: 2014Q3

REPORT INFORMATION
  Report Type: Spontaneous
  Country: US (occurrence: None)
  Receive Date: 20140911
  Receipt Date: 20140911
  Transmission Date: 20150326
  Serious: No
  Sender: FDA-Public Use
  Company Number: None

PATIENT
  Sex: Female
  Weight: 77.11 kg

DRUGS (8)
  1. VITAMIN B12 [Concomitant]
     Active Substance: CYANOCOBALAMIN
  2. BENTROPINE MESYLATE (BENZATROPINE MESILATE) [Concomitant]
     Active Substance: BENZTROPINE
  3. RISPERDAL [Suspect]
     Active Substance: RISPERIDONE
     Indication: SCHIZOPHRENIA
     Route: 048
     Dates: start: 2001
  4. RISPERDAL [Concomitant]
     Active Substance: RISPERIDONE
  5. ANASTROZOLE. [Concomitant]
     Active Substance: ANASTROZOLE
  6. VITAMIN B [Concomitant]
     Active Substance: VITAMIN B
  7. VITAMIN D [Concomitant]
     Active Substance: CHOLECALCIFEROL
  8. VITAMIN C [Concomitant]
     Active Substance: ASCORBIC ACID

REACTIONS (7)
  - Speech disorder [None]
  - Balance disorder [None]
  - Memory impairment [None]
  - Mental impairment [None]
  - Tremor [None]
  - Visual impairment [None]
  - Gait disturbance [None]

NARRATIVE: CASE EVENT DATE: 2001
